FAERS Safety Report 4421603-4 (Version None)
Quarter: 2004Q3

REPORT INFORMATION
  Report Type: 
  Country: None (occurrence: None)
  Receive Date: 20040804
  Receipt Date: 20040726
  Transmission Date: 20050211
  Serious: Yes (Life-Threatening)
  Sender: FDA-Public Use
  Company Number: D01200402385

PATIENT
  Age: 62 Year
  Sex: Male

DRUGS (9)
  1. (FONDAPARINUX) - SOLUTION - UNIT DOSE [Suspect]
     Indication: ANGINA UNSTABLE
     Dosage: 2.5 MG QD
     Route: 058
     Dates: start: 20040624
  2. (FONDAPARINUX) - SOLUTION - UNIT DOSE [Suspect]
     Indication: MYOCARDIAL INFARCTION
     Dosage: 2.5 MG QD
     Route: 058
     Dates: start: 20040624
  3. ASCAL (ACETYLSALICYLATE CALCIUM) [Concomitant]
  4. PLAVIX [Concomitant]
  5. DIOVAN [Concomitant]
  6. SELOKEEN (METOPROLOL TARTRATE) [Concomitant]
  7. AGGRASTAT [Concomitant]
  8. HYDROCHLOROTHIAZIDE [Concomitant]
  9. LIPITOR [Concomitant]

REACTIONS (5)
  - CATHETER RELATED COMPLICATION [None]
  - ELECTROCARDIOGRAM ST SEGMENT ELEVATION [None]
  - EMBOLISM [None]
  - MYOCARDIAL INFARCTION [None]
  - THROMBOSIS [None]
